FAERS Safety Report 12713320 (Version 7)
Quarter: 2023Q4

REPORT INFORMATION
  Report Type: Spontaneous
  Country: CA (occurrence: CA)
  Receive Date: 20160902
  Receipt Date: 20231024
  Transmission Date: 20240109
  Serious: Yes (Hospitalization, Other)
  Sender: FDA-Public Use
  Company Number: CA-BAXTER-2016BAX045339

PATIENT
  Age: 58 Year
  Sex: Female

DRUGS (42)
  1. ISOFLURANE [Suspect]
     Active Substance: ISOFLURANE
     Indication: Appendicitis
     Dosage: (USP) (DOSAGE FORM: LIQUID INHALATION)
  2. ISOFLURANE [Suspect]
     Active Substance: ISOFLURANE
     Indication: Seizure
     Dosage: (DOSAGE FORM: INHALATION GAS)
  3. ISOFLURANE [Suspect]
     Active Substance: ISOFLURANE
     Indication: Status epilepticus
     Dosage: UNK
     Route: 065
  4. ISOFLURANE [Suspect]
     Active Substance: ISOFLURANE
     Indication: Off label use
  5. PROPOFOL [Suspect]
     Active Substance: PROPOFOL
     Indication: Status epilepticus
     Dosage: (INJECTION) (DOSAGE FORM: EMULSION)
     Route: 065
  6. PROPOFOL [Suspect]
     Active Substance: PROPOFOL
     Indication: Electroencephalogram abnormal
     Dosage: (DOSAGE FORM: NOT SPECIFIED) 150 MILLIGRAM, 2 EVERY 1 DAYS
     Route: 042
  7. PROPOFOL [Suspect]
     Active Substance: PROPOFOL
     Indication: Seizure
  8. KETAMINE HYDROCHLORIDE [Suspect]
     Active Substance: KETAMINE HYDROCHLORIDE
     Indication: Status epilepticus
     Dosage: (USP) (DOSAGE FORM: SOLUTION INTRAMUSCULAR)
     Route: 065
  9. KETAMINE HYDROCHLORIDE [Suspect]
     Active Substance: KETAMINE HYDROCHLORIDE
     Indication: Anaesthesia
     Dosage: DOSAGE FORM: NOT SPECIFIED
     Route: 065
  10. LEVETIRACETAM [Suspect]
     Active Substance: LEVETIRACETAM
     Indication: Seizure
     Dosage: DOSAGE FORM: TABLET, UNSPECIFIED DOSE AND FREQUENCY
     Route: 065
  11. LEVETIRACETAM [Suspect]
     Active Substance: LEVETIRACETAM
     Indication: Status epilepticus
     Dosage: DOSAGE FORM: NOT SPECIFIED, UNSPECIFIED DOSE AND FREQUENCY
     Route: 065
  12. LEVETIRACETAM [Suspect]
     Active Substance: LEVETIRACETAM
     Indication: Product used for unknown indication
  13. KETAMINE [Suspect]
     Active Substance: KETAMINE
     Indication: Status epilepticus
     Dosage: (DOSAGE FORM: NOT SPECIFIED), UNSPECIFIED DOSE AND FREQUENCY
     Route: 065
  14. KETAMINE [Suspect]
     Active Substance: KETAMINE
     Indication: Anaesthesia
  15. MIDAZOLAM HYDROCHLORIDE [Suspect]
     Active Substance: MIDAZOLAM HYDROCHLORIDE
     Indication: Seizure
     Dosage: UNK
     Route: 065
  16. PHENOBARBITAL [Suspect]
     Active Substance: PHENOBARBITAL
     Indication: Seizure
     Dosage: (DOSAGE FORM: NOT SPECIFIED) 150 MILLIGRAM, BID (2 EVERY 1 DAYS)
     Route: 065
  17. PHENOBARBITAL [Suspect]
     Active Substance: PHENOBARBITAL
     Indication: Status epilepticus
     Dosage: DOSAGE FORM: NOT SPECIFIED, UNSPECIFIED DOSE AND FREQUENCY
     Route: 065
  18. PROPOFOL [Suspect]
     Active Substance: PROPOFOL
     Indication: Status epilepticus
     Dosage: (MYLAN) 150 MILLIGRAM, BID (2 EVERY 1 DAYS)
     Route: 065
  19. PROPOFOL [Suspect]
     Active Substance: PROPOFOL
     Indication: Electroencephalogram abnormal
  20. PHENYTOIN [Suspect]
     Active Substance: PHENYTOIN
     Indication: Seizure
     Dosage: (DOSAGE FORM: NOT SPECIFIED)
     Route: 065
  21. PHENYTOIN [Suspect]
     Active Substance: PHENYTOIN
     Indication: Status epilepticus
  22. VALPROIC ACID [Suspect]
     Active Substance: VALPROIC ACID
     Indication: Seizure
     Dosage: (DOSAGE FORM: NOT SPECIFIED), UNSPECIFIED DOSE AND FREQUENCY
     Route: 065
  23. VALPROIC ACID [Suspect]
     Active Substance: VALPROIC ACID
     Indication: Status epilepticus
  24. METHYLPREDNISOLONE SODIUM SUCCINATE [Suspect]
     Active Substance: METHYLPREDNISOLONE SODIUM SUCCINATE
     Indication: Product used for unknown indication
     Dosage: 4 GRAM, PRN
     Route: 042
  25. MIDAZOLAM [Suspect]
     Active Substance: MIDAZOLAM
     Indication: Electroencephalogram abnormal
     Dosage: (DOSAGE FORM: SOLUTION INTRAMUSCULAR)
     Route: 065
  26. MIDAZOLAM [Suspect]
     Active Substance: MIDAZOLAM
     Indication: Seizure
  27. MIDAZOLAM [Suspect]
     Active Substance: MIDAZOLAM
     Indication: Status epilepticus
  28. LEVETIRACETAM [Suspect]
     Active Substance: LEVETIRACETAM
     Indication: Status epilepticus
     Dosage: UNK
     Route: 065
  29. MIDAZOLAM HYDROCHLORIDE [Suspect]
     Active Substance: MIDAZOLAM HYDROCHLORIDE
     Indication: Status epilepticus
     Dosage: (DOSAGE FORM: LIQUID INTRAMUSCULAR)
     Route: 065
  30. METHYLPREDNISOLONE [Suspect]
     Active Substance: METHYLPREDNISOLONE
     Indication: Status epilepticus
     Dosage: 4 GRAM, UNSPCIFIED FREQUENCY
     Route: 042
  31. METHYLPREDNISOLONE [Suspect]
     Active Substance: METHYLPREDNISOLONE
     Indication: Product used for unknown indication
  32. KEPPRA [Suspect]
     Active Substance: LEVETIRACETAM
     Indication: Status epilepticus
     Dosage: UNK UNK, PRN
     Route: 065
  33. PIPERACILLIN AND TAZOBACTAM [Concomitant]
     Active Substance: PIPERACILLIN SODIUM\TAZOBACTAM SODIUM
     Indication: Product used for unknown indication
     Dosage: UNK
     Route: 065
  34. PIPERACILLIN AND TAZOBACTAM [Concomitant]
     Active Substance: PIPERACILLIN SODIUM\TAZOBACTAM SODIUM
     Indication: Appendicitis
     Dosage: UNK
     Route: 065
  35. METHYLPREDNISOLONE [Concomitant]
     Active Substance: METHYLPREDNISOLONE
     Indication: Status epilepticus
     Dosage: (NOS) (DOSAGE FORM: NOT SPECIFIED)
     Route: 065
  36. PHENOBARBITAL [Concomitant]
     Active Substance: PHENOBARBITAL
     Indication: Product used for unknown indication
     Dosage: (DOSAGE FORM: SOLUTION INTRAMUSCULAR)
     Route: 065
  37. PHENOBARBITAL [Concomitant]
     Active Substance: PHENOBARBITAL
     Dosage: 150 MILLIGRAM, BID (2 EVERY 1 DAYS)
     Route: 065
  38. PHENYTOIN [Concomitant]
     Active Substance: PHENYTOIN
     Indication: Seizure
     Dosage: UNK
     Route: 065
  39. VALPROIC ACID [Concomitant]
     Active Substance: VALPROIC ACID
     Indication: Product used for unknown indication
     Dosage: UNK
     Route: 065
  40. TEGRETOL [Concomitant]
     Active Substance: CARBAMAZEPINE
     Indication: Product used for unknown indication
     Dosage: (DOSAGE FORM: NOT SPECIFIED)
     Route: 065
  41. LEVETIRACETAM [Concomitant]
     Active Substance: LEVETIRACETAM
     Indication: Product used for unknown indication
     Dosage: UNK
     Route: 065
  42. PIPERACILLIN AND TAZOBACTAM [Concomitant]
     Active Substance: PIPERACILLIN SODIUM\TAZOBACTAM SODIUM
     Indication: Appendicitis
     Route: 065

REACTIONS (22)
  - Abscess [Recovered/Resolved]
  - Intestinal ischaemia [Recovered/Resolved]
  - Pneumatosis [Recovered/Resolved]
  - Systemic inflammatory response syndrome [Recovered/Resolved]
  - Necrosis ischaemic [Recovered/Resolved]
  - Drug ineffective [Recovered/Resolved]
  - Abdominal distension [Recovered/Resolved]
  - Cardiomegaly [Recovered/Resolved]
  - Intra-abdominal pressure increased [Recovered/Resolved]
  - Left ventricular hypertrophy [Recovered/Resolved]
  - Perforation [Recovered/Resolved]
  - Off label use [Recovered/Resolved]
  - Procedural intestinal perforation [Recovered/Resolved]
  - Carbohydrate antigen 125 increased [Recovered/Resolved]
  - Intestinal infarction [Recovered/Resolved]
  - Ultrasound ovary abnormal [Recovered/Resolved]
  - Large intestine perforation [Recovered/Resolved]
  - Intestinal perforation [Recovered/Resolved]
  - Hypertrophic cardiomyopathy [Unknown]
  - Maternal exposure during pregnancy [Recovered/Resolved]
  - Hypotension [Recovered/Resolved]
  - Vomiting [Recovered/Resolved]
